FAERS Safety Report 17480037 (Version 5)
Quarter: 2021Q4

REPORT INFORMATION
  Report Type: Spontaneous
  Country: US (occurrence: US)
  Receive Date: 20200228
  Receipt Date: 20211124
  Transmission Date: 20220303
  Serious: Yes (Other)
  Sender: FDA-Public Use
  Company Number: US-ELI_LILLY_AND_COMPANY-US202002008603

PATIENT
  Sex: Female

DRUGS (30)
  1. HUMULIN R U-500 [Suspect]
     Active Substance: INSULIN HUMAN
     Indication: Type 2 diabetes mellitus
     Dosage: 200 U, EACH MORNING
     Route: 058
     Dates: start: 2012
  2. HUMULIN R U-500 [Suspect]
     Active Substance: INSULIN HUMAN
     Indication: Type 2 diabetes mellitus
     Dosage: 200 U, EACH MORNING
     Route: 058
     Dates: start: 2012
  3. HUMULIN R U-500 [Suspect]
     Active Substance: INSULIN HUMAN
     Indication: Type 2 diabetes mellitus
     Dosage: 200 U, EACH MORNING
     Route: 058
     Dates: start: 2012
  4. HUMULIN R U-500 [Suspect]
     Active Substance: INSULIN HUMAN
     Dosage: 80 U, DAILY(AT NIGHT)
     Route: 058
     Dates: start: 2012
  5. HUMULIN R U-500 [Suspect]
     Active Substance: INSULIN HUMAN
     Dosage: 80 U, DAILY(AT NIGHT)
     Route: 058
     Dates: start: 2012
  6. HUMULIN R U-500 [Suspect]
     Active Substance: INSULIN HUMAN
     Dosage: 80 U, DAILY(AT NIGHT)
     Route: 058
     Dates: start: 2012
  7. HUMULIN R U-500 [Suspect]
     Active Substance: INSULIN HUMAN
     Dosage: 200 U, EACH MORNING
     Route: 058
     Dates: start: 2012
  8. HUMULIN R U-500 [Suspect]
     Active Substance: INSULIN HUMAN
     Dosage: 200 U, EACH MORNING
     Route: 058
     Dates: start: 2012
  9. HUMULIN R U-500 [Suspect]
     Active Substance: INSULIN HUMAN
     Dosage: 80 U, DAILY(AT NIGHT)
     Route: 058
     Dates: start: 2012
  10. HUMULIN R U-500 [Suspect]
     Active Substance: INSULIN HUMAN
     Dosage: 80 U, DAILY(AT NIGHT)
     Route: 058
     Dates: start: 2012
  11. HUMULIN R U-500 [Suspect]
     Active Substance: INSULIN HUMAN
     Dosage: 200 U, EACH MORNING
     Route: 058
  12. HUMULIN R U-500 [Suspect]
     Active Substance: INSULIN HUMAN
     Dosage: 200 U, EACH MORNING
     Route: 058
  13. HUMULIN R U-500 [Suspect]
     Active Substance: INSULIN HUMAN
     Dosage: 80 U, DAILY(AT NIGHT)
     Route: 058
  14. HUMULIN R U-500 [Suspect]
     Active Substance: INSULIN HUMAN
     Dosage: 80 U, DAILY(AT NIGHT)
     Route: 058
  15. HUMULIN R U-500 [Suspect]
     Active Substance: INSULIN HUMAN
     Dosage: 200 U, EACH MORNING
     Route: 058
  16. HUMULIN R U-500 [Suspect]
     Active Substance: INSULIN HUMAN
     Dosage: 80 U, DAILY(AT NIGHT)
     Route: 058
  17. HUMULIN R U-500 [Suspect]
     Active Substance: INSULIN HUMAN
     Dosage: 205 U, DAILY (BEFORE BREAKFAST)
     Route: 058
  18. HUMULIN R U-500 [Suspect]
     Active Substance: INSULIN HUMAN
     Dosage: 205 U, DAILY (BEFORE BREAKFAST)
     Route: 058
  19. HUMULIN R U-500 [Suspect]
     Active Substance: INSULIN HUMAN
     Dosage: 205 U, DAILY (BEFORE BREAKFAST)
     Route: 058
  20. HUMULIN R U-500 [Suspect]
     Active Substance: INSULIN HUMAN
     Dosage: 80 U, DAILY (BEFORE DINNER)
     Route: 058
  21. HUMULIN R U-500 [Suspect]
     Active Substance: INSULIN HUMAN
     Dosage: 80 U, DAILY (BEFORE DINNER)
     Route: 058
  22. HUMULIN R U-500 [Suspect]
     Active Substance: INSULIN HUMAN
     Dosage: 80 U, DAILY (BEFORE DINNER)
     Route: 058
  23. HUMULIN R U-500 [Suspect]
     Active Substance: INSULIN HUMAN
     Dosage: 285 U, DAILY
     Route: 065
  24. HUMULIN R U-500 [Suspect]
     Active Substance: INSULIN HUMAN
     Dosage: 285 U, DAILY
     Route: 065
  25. HUMULIN R U-500 [Suspect]
     Active Substance: INSULIN HUMAN
     Dosage: 285 U, DAILY
     Route: 065
  26. HUMULIN R U-500 [Suspect]
     Active Substance: INSULIN HUMAN
     Dosage: 150 U, EACH MORNING
     Route: 065
  27. HUMULIN R U-500 [Suspect]
     Active Substance: INSULIN HUMAN
     Dosage: 115 U, NOON
     Route: 065
  28. HUMULIN R U-500 [Suspect]
     Active Substance: INSULIN HUMAN
     Dosage: 90 U, EACH EVENING
     Route: 065
  29. TRULICITY [Suspect]
     Active Substance: DULAGLUTIDE
     Indication: Product used for unknown indication
     Dosage: 0.75 MG, UNKNOWN
     Route: 065
  30. LANTUS [Concomitant]
     Active Substance: INSULIN GLARGINE
     Indication: Diabetes mellitus
     Dosage: UNK
     Dates: start: 2012

REACTIONS (16)
  - Hepatic cirrhosis [Not Recovered/Not Resolved]
  - Lower limb fracture [Not Recovered/Not Resolved]
  - Hand fracture [Not Recovered/Not Resolved]
  - Foot fracture [Not Recovered/Not Resolved]
  - Concussion [Not Recovered/Not Resolved]
  - Fall [Unknown]
  - Amnesia [Unknown]
  - Movement disorder [Not Recovered/Not Resolved]
  - Visual impairment [Not Recovered/Not Resolved]
  - Ankle fracture [Unknown]
  - Blood glucose increased [Unknown]
  - Nausea [Unknown]
  - Fall [Unknown]
  - Bone disorder [Unknown]
  - Incorrect product administration duration [Not Recovered/Not Resolved]
  - Incorrect dose administered [Not Recovered/Not Resolved]

NARRATIVE: CASE EVENT DATE: 20150101
